FAERS Safety Report 6464652-7 (Version None)
Quarter: 2009Q4

REPORT INFORMATION
  Report Type: 
  Country: None (occurrence: None)
  Receive Date: 20091201
  Receipt Date: 20091124
  Transmission Date: 20100525
  Serious: Yes (Other)
  Sender: FDA-Public Use
  Company Number: US-BRISTOL-MYERS SQUIBB COMPANY-14870885

PATIENT
  Age: 7 Year
  Sex: Female
  Weight: 19 kg

DRUGS (3)
  1. CEFZIL [Suspect]
     Indication: EAR INFECTION
     Route: 048
     Dates: start: 20091001, end: 20091101
  2. AMOXICILLIN [Suspect]
     Indication: EAR INFECTION
     Dates: start: 20091001
  3. DAYTRANA [Suspect]
     Indication: ATTENTION DEFICIT/HYPERACTIVITY DISORDER
     Dosage: CUTS 10MG PATCH AND WEARS ONE HALF;INTERRUPTED ON 17OCT2009;RESTARTED ON 01NOV09
     Route: 062
     Dates: start: 20090901

REACTIONS (3)
  - DRUG INEFFECTIVE [None]
  - HYPERSENSITIVITY [None]
  - TYMPANIC MEMBRANE PERFORATION [None]
